FAERS Safety Report 4426519-5 (Version None)
Quarter: 2004Q3

REPORT INFORMATION
  Report Type: 
  Country: None (occurrence: None)
  Receive Date: 20040816
  Receipt Date: 20040805
  Transmission Date: 20050211
  Serious: Yes (Other)
  Sender: FDA-Public Use
  Company Number: PHEH2004US08486

PATIENT
  Age: 59 Year
  Sex: Female

DRUGS (2)
  1. TRILEPTAL [Suspect]
     Indication: CONVULSION
     Dosage: 1500 MG, QD
     Route: 048
     Dates: start: 20040401
  2. TRILEPTAL [Suspect]
     Dosage: 1350 MG, QD
     Route: 048
     Dates: start: 20040501

REACTIONS (5)
  - CRANIOTOMY [None]
  - DIZZINESS [None]
  - FATIGUE [None]
  - GAIT DISTURBANCE [None]
  - SOMNOLENCE [None]
